FAERS Safety Report 13831291 (Version 1)
Quarter: 2017Q3

REPORT INFORMATION
  Report Type: Report from Study
  Country: CA (occurrence: CA)
  Receive Date: 20170803
  Receipt Date: 20170803
  Transmission Date: 20171127
  Serious: Yes (Congenital Anomaly, Other)
  Sender: FDA-Public Use
  Company Number: CA-AMGEN-CANSL2017092390

PATIENT
  Age: 41 Year
  Sex: Female
  Weight: 57 kg

DRUGS (2)
  1. XGEVA [Suspect]
     Active Substance: DENOSUMAB
     Indication: METASTASES TO BONE
     Dosage: 120 MG/1.7 ML, Q4WK
     Route: 058
     Dates: start: 201606
  2. LUTETIUM (LU 177) [Suspect]
     Active Substance: LUTETIUM LU-177
     Indication: METASTATIC NEOPLASM
     Dosage: UNK UNK, Q2MO
     Route: 065
     Dates: start: 201607, end: 201701

REACTIONS (13)
  - Neutropenia [Recovering/Resolving]
  - Thrombocytopenia [Recovering/Resolving]
  - Red blood cell count decreased [Unknown]
  - Vomiting [Unknown]
  - White blood cell count decreased [Unknown]
  - Cytopenia [Recovering/Resolving]
  - Hypocalcaemia [Recovering/Resolving]
  - Inappropriate schedule of drug administration [Unknown]
  - Musculoskeletal pain [Not Recovered/Not Resolved]
  - Blood calcium decreased [Unknown]
  - Osteosclerosis [Unknown]
  - Sleep disorder [Unknown]
  - Platelet count decreased [Unknown]

NARRATIVE: CASE EVENT DATE: 201607
